FAERS Safety Report 24724486 (Version 2)
Quarter: 2025Q1

REPORT INFORMATION
  Report Type: Report from Study
  Country: US (occurrence: US)
  Receive Date: 20241212
  Receipt Date: 20250310
  Transmission Date: 20250409
  Serious: Yes (Hospitalization)
  Sender: JOHNSON AND JOHNSON
  Company Number: US-JNJFOC-20241226491

PATIENT
  Age: 37 Year
  Sex: Female
  Weight: 72.57 kg

DRUGS (2)
  1. SPRAVATO [Suspect]
     Active Substance: ESKETAMINE
     Indication: Depression
     Route: 045
     Dates: start: 20230301, end: 20241009
  2. SPRAVATO [Suspect]
     Active Substance: ESKETAMINE
     Route: 045
     Dates: start: 20230227, end: 20230227

REACTIONS (1)
  - Superior vena cava syndrome [Unknown]

NARRATIVE: CASE EVENT DATE: 20241203
